FAERS Safety Report 20210476 (Version 2)
Quarter: 2022Q1

REPORT INFORMATION
  Report Type: Spontaneous
  Country: FR (occurrence: FR)
  Receive Date: 20211221
  Receipt Date: 20220107
  Transmission Date: 20220423
  Serious: Yes (Hospitalization)
  Sender: FDA-Public Use
  Company Number: None

PATIENT
  Age: 56 Year
  Sex: Male

DRUGS (3)
  1. BUPRENORPHINE [Suspect]
     Active Substance: BUPRENORPHINE
     Dosage: UNKNOWN
     Route: 065
     Dates: start: 2021
  2. COCAINE [Suspect]
     Active Substance: COCAINE
     Dosage: UNKNOWN
     Route: 065
     Dates: start: 202106
  3. VALIUM [Suspect]
     Active Substance: DIAZEPAM
     Dosage: UNIT DOSE :30 MG ,+ 1 IF NEEDED PRESCRIPTION
     Route: 065
     Dates: start: 2021

REACTIONS (3)
  - Intentional product misuse [Unknown]
  - Altered state of consciousness [Recovered/Resolved]
  - Respiratory distress [Recovered/Resolved]

NARRATIVE: CASE EVENT DATE: 20210101
